FAERS Safety Report 4513600-5 (Version None)
Quarter: 2004Q4

REPORT INFORMATION
  Report Type: 
  Country: None (occurrence: None)
  Receive Date: 20041130
  Receipt Date: 20040810
  Transmission Date: 20050328
  Serious: No
  Sender: FDA-Public Use
  Company Number: US-GLAXOSMITHKLINE-A0521657A

PATIENT
  Sex: Male

DRUGS (3)
  1. WELLBUTRIN XL [Suspect]
     Dosage: 300MG PER DAY
     Route: 048
     Dates: start: 20040601
  2. ROBITUSSIN DM [Suspect]
     Indication: ILL-DEFINED DISORDER
  3. NO CONCURRENT MEDICATION [Concomitant]

REACTIONS (2)
  - COUGH [None]
  - DRUG INTERACTION [None]
